FAERS Safety Report 7809852-6 (Version None)
Quarter: 2011Q4

REPORT INFORMATION
  Report Type: 
  Country: None (occurrence: None)
  Receive Date: 20111012
  Receipt Date: 20111006
  Transmission Date: 20120403
  Serious: Yes (Other)
  Sender: FDA-Public Use
  Company Number: IT-ABBOTT-11P-083-0862253-00

PATIENT
  Age: 34 Year
  Sex: Female

DRUGS (4)
  1. VALPROATE SODIUM [Suspect]
     Indication: COMPLEX PARTIAL SEIZURES
  2. TOPIRAMATE [Suspect]
     Indication: COMPLEX PARTIAL SEIZURES
  3. TOPIRAMATE [Suspect]
  4. CARBAMAZEPINE [Suspect]
     Indication: COMPLEX PARTIAL SEIZURES

REACTIONS (4)
  - CONVULSION [None]
  - EYELID DISORDER [None]
  - SPEECH DISORDER [None]
  - POSTURE ABNORMAL [None]
